FAERS Safety Report 7329141-6 (Version None)
Quarter: 2011Q1

REPORT INFORMATION
  Report Type: 
  Country: None (occurrence: None)
  Receive Date: 20110222
  Receipt Date: 20110210
  Transmission Date: 20110831
  Serious: Yes (Hospitalization, Other)
  Sender: FDA-Public Use
  Company Number: 2011MA001467

PATIENT
  Age: 80 Year
  Sex: Male

DRUGS (9)
  1. TAMSULOSIN [Concomitant]
  2. PREV MEDS [Concomitant]
  3. PAROXETINE TABLETS, 40 MG (AELLC) (PAROXETINE) [Suspect]
     Indication: DEPRESSION
     Dosage: 40 MG, PO
     Route: 048
     Dates: start: 20100909
  4. PARACETAMOL [Concomitant]
  5. METFORMIN HYDROCHLORIDE [Suspect]
  6. GLICLAZIDE (GLICLAZIDE) [Suspect]
  7. CO-BENELDOPA [Concomitant]
  8. DIPYRIDAMOLE [Concomitant]
  9. FERROUS SULFATE TAB [Concomitant]

REACTIONS (1)
  - HYPOGLYCAEMIA [None]
